FAERS Safety Report 4321082-1 (Version None)
Quarter: 2004Q1

REPORT INFORMATION
  Report Type: 
  Country: None (occurrence: None)
  Receive Date: 20040322
  Receipt Date: 20040322
  Transmission Date: 20041129
  Serious: Yes (Hospitalization)
  Sender: FDA-Public Use
  Company Number: None

PATIENT
  Age: 55 Year
  Sex: Male
  Weight: 79 kg

DRUGS (9)
  1. BACLOFEN [Suspect]
     Indication: MYALGIA
     Dosage: 5 MG BID PRN
     Dates: start: 20040109, end: 20040112
  2. PARACALITOL [Concomitant]
  3. EPOGEN [Concomitant]
  4. FERROUS GLUCONATE [Concomitant]
  5. ALLOPURINOL [Concomitant]
  6. WARFARIN SODIUM [Concomitant]
  7. NEPHROVITE [Concomitant]
  8. METOPROLOL [Concomitant]
  9. OXYCODONE AND ACETAMINOPHEN [Concomitant]

REACTIONS (4)
  - CONFUSIONAL STATE [None]
  - FATIGUE [None]
  - MENTAL STATUS CHANGES [None]
  - SOMNOLENCE [None]
